FAERS Safety Report 9198405 (Version 1)
Quarter: 2013Q1

REPORT INFORMATION
  Report Type: Spontaneous
  Country: US (occurrence: None)
  Receive Date: 20130327
  Receipt Date: 20130327
  Transmission Date: 20140127
  Serious: Yes (Life-Threatening, Hospitalization, Other)
  Sender: FDA-Public Use
  Company Number: None

PATIENT
  Age: 64 Year
  Sex: Female
  Weight: 84.37 kg

DRUGS (2)
  1. LATUDA [Suspect]
     Indication: DEPRESSION
     Route: 048
  2. LATUDA [Suspect]
     Indication: BIPOLAR DISORDER
     Route: 048

REACTIONS (4)
  - Renal failure [None]
  - Dehydration [None]
  - Muscle strain [None]
  - Fall [None]
